FAERS Safety Report 4767146-X (Version None)
Quarter: 2005Q3

REPORT INFORMATION
  Report Type: 
  Country: None (occurrence: None)
  Receive Date: 20050906
  Receipt Date: 20050503
  Transmission Date: 20060218
  Serious: No
  Sender: FDA-Public Use
  Company Number: 2005-BP-07961BP

PATIENT
  Age: 51 Year
  Sex: Female
  Weight: 135 kg

DRUGS (19)
  1. SPIRIVA [Suspect]
     Indication: CHRONIC OBSTRUCTIVE PULMONARY DISEASE
     Dosage: 36 MCG (18 MCG,BID), IH
     Route: 055
  2. LIPITOR [Concomitant]
  3. WELLBUTRIN SR [Concomitant]
  4. ADVAIR DISKUS 100/50 [Concomitant]
  5. ALBUTEROL [Concomitant]
  6. K-DUR 10 [Concomitant]
  7. LASIX [Concomitant]
  8. NORVASC [Concomitant]
  9. TAPAZOLE [Concomitant]
  10. OS-CAL D (LEKOVIT CA) [Concomitant]
  11. SINGULAIR [Concomitant]
  12. COMBIVENT (COMBIVENT  /GFR/) [Concomitant]
  13. QUININE SULFATE [Concomitant]
  14. LISINOPRIL [Concomitant]
  15. ALBUTEROL/ATROVENT [Concomitant]
  16. BUSPAR [Concomitant]
  17. ZOLOFT [Concomitant]
  18. PREVACID [Concomitant]
  19. FLONASE [Concomitant]

REACTIONS (2)
  - BURNING SENSATION [None]
  - RASH PRURITIC [None]
